FAERS Safety Report 6019057-X (Version None)
Quarter: 2008Q4

REPORT INFORMATION
  Report Type: 
  Country: None (occurrence: None)
  Receive Date: 20081224
  Receipt Date: 20081218
  Transmission Date: 20090506
  Serious: Yes (Death, Hospitalization)
  Sender: FDA-Public Use
  Company Number: US-JNJFOC-20081205599

PATIENT
  Age: 7 Year
  Sex: Male

DRUGS (2)
  1. ACETAMINOPHEN [Suspect]
     Route: 048
  2. ACETAMINOPHEN [Suspect]
     Indication: DRUG USE FOR UNKNOWN INDICATION
     Route: 048

REACTIONS (5)
  - ACCIDENTAL DRUG INTAKE BY CHILD [None]
  - ANURIA [None]
  - DRUG TOXICITY [None]
  - HEPATIC FAILURE [None]
  - HYPOTENSION [None]
